FAERS Safety Report 7277117-X (Version None)
Quarter: 2011Q1

REPORT INFORMATION
  Report Type: 
  Country: None (occurrence: None)
  Receive Date: 20110202
  Receipt Date: 20110202
  Transmission Date: 20110831
  Serious: Yes (Other)
  Sender: FDA-Public Use
  Company Number: None

PATIENT
  Sex: Male
  Weight: 84.369 kg

DRUGS (5)
  1. LUPRON [Concomitant]
  2. OMEPRAZOLE [Concomitant]
  3. CALCIUM + D [Concomitant]
  4. RECLAST [Suspect]
     Indication: OSTEOPOROSIS
     Dosage: 5MG IV ONCE YEARLY
     Route: 042
     Dates: start: 20100927
  5. SIMVASTATIN [Concomitant]

REACTIONS (6)
  - DIARRHOEA [None]
  - ARTHRALGIA [None]
  - BURNING SENSATION [None]
  - OEDEMA PERIPHERAL [None]
  - PAIN IN EXTREMITY [None]
  - PARAESTHESIA [None]
